FAERS Safety Report 9239922 (Version 1)
Quarter: 2013Q2

REPORT INFORMATION
  Report Type: Spontaneous
  Country: US (occurrence: US)
  Receive Date: 20130418
  Receipt Date: 20130418
  Transmission Date: 20140414
  Serious: No
  Sender: FDA-Public Use
  Company Number: US-009507513-1304USA007569

PATIENT
  Sex: Male

DRUGS (1)
  1. SAPHRIS [Suspect]
     Indication: BIPOLAR DISORDER
     Dosage: 5 MG, BID
     Route: 060
     Dates: end: 20130401

REACTIONS (2)
  - Paraesthesia oral [Recovered/Resolved]
  - Glossodynia [Recovered/Resolved]
